FAERS Safety Report 25008823 (Version 1)
Quarter: 2025Q1

REPORT INFORMATION
  Report Type: Report from Study
  Country: CA (occurrence: CA)
  Receive Date: 20250225
  Receipt Date: 20250225
  Transmission Date: 20250409
  Serious: Yes (Other)
  Sender: UCB
  Company Number: CA-UCBSA-2025008064

PATIENT
  Age: 0 Year
  Sex: Female

DRUGS (16)
  1. CERTOLIZUMAB PEGOL [Suspect]
     Active Substance: CERTOLIZUMAB PEGOL
     Indication: Juvenile idiopathic arthritis
     Dosage: 200 MILLIGRAM, 2X/MONTH
     Route: 064
     Dates: start: 20160407, end: 20170104
  2. PRIMROSE OIL [Concomitant]
     Indication: Product used for unknown indication
     Dosage: 1000 MILLIGRAM, ONCE DAILY (QD)
     Route: 064
     Dates: start: 20161208, end: 20170104
  3. ACETAMINOPHEN [Concomitant]
     Active Substance: ACETAMINOPHEN
     Indication: Headache
     Route: 064
     Dates: start: 20160407, end: 20170104
  4. INFLUENZA VIRUS VACCINE [Concomitant]
     Active Substance: INFLUENZA VIRUS VACCINE
     Indication: Product used for unknown indication
     Route: 064
     Dates: start: 20161020, end: 20161020
  5. AMOXICILLIN [Concomitant]
     Active Substance: AMOXICILLIN
     Indication: Sinusitis
     Dosage: 500 MILLIGRAM, 3X/DAY (TID)
     Route: 064
     Dates: start: 20160530, end: 20160605
  6. ASPIRIN [Concomitant]
     Active Substance: ASPIRIN
     Indication: Pre-eclampsia
     Dosage: 81 MILLIGRAM, ONCE DAILY (QD)
     Route: 064
     Dates: start: 20160623, end: 20170104
  7. CALCIUM\CHOLECALCIFEROL\MAGNESIUM [Concomitant]
     Active Substance: CALCIUM\CHOLECALCIFEROL\MAGNESIUM
     Indication: Muscle spasms
     Route: 064
     Dates: start: 20160407, end: 20170104
  8. CALCIUM\CHOLECALCIFEROL\MAGNESIUM [Concomitant]
     Active Substance: CALCIUM\CHOLECALCIFEROL\MAGNESIUM
     Route: 064
     Dates: start: 20160407, end: 20170104
  9. MINERALS\VITAMINS [Concomitant]
     Active Substance: MINERALS\VITAMINS
     Indication: Product used for unknown indication
     Dosage: 1 PILL, ONCE DAY
     Route: 064
     Dates: start: 20160415, end: 20170104
  10. TUMS [Concomitant]
     Active Substance: CALCIUM CARBONATE
     Indication: Dyspepsia
     Route: 064
     Dates: start: 20160407, end: 20160907
  11. TUMS [Concomitant]
     Active Substance: CALCIUM CARBONATE
     Dosage: 2 PILL, ONCE DAILY (QD)
     Route: 064
     Dates: start: 20160908, end: 20170104
  12. TYLENOL [Concomitant]
     Active Substance: ACETAMINOPHEN
     Indication: Pyrexia
     Dosage: 500 MILLIGRAM, 2X/DAY (BID)
     Route: 064
     Dates: start: 20160530, end: 20160530
  13. VITAMIN B12 [Concomitant]
     Active Substance: CYANOCOBALAMIN
     Indication: Anaemia
     Dosage: 100 MICROGRAM, ONCE DAILY (QD)
     Route: 064
     Dates: start: 20160415, end: 20170104
  14. VITAMIN C [Concomitant]
     Active Substance: ASCORBIC ACID
     Indication: Product used for unknown indication
     Dosage: 1000 MILLIGRAM, 2X/DAY (BID)
     Route: 062
     Dates: start: 20160407, end: 20170104
  15. CHOLECALCIFEROL [Concomitant]
     Active Substance: CHOLECALCIFEROL
     Indication: Product used for unknown indication
     Dosage: 1000 INTERNATIONAL UNIT, ONCE DAILY (QD)
     Route: 064
     Dates: start: 20160407, end: 20170104
  16. ZANTAC [Concomitant]
     Active Substance: RANITIDINE HYDROCHLORIDE
     Indication: Dyspepsia
     Route: 064
     Dates: start: 20160407, end: 20170104

REACTIONS (3)
  - Chronic recurrent multifocal osteomyelitis [Unknown]
  - Maternal exposure before pregnancy [Unknown]
  - Maternal exposure during pregnancy [Unknown]

NARRATIVE: CASE EVENT DATE: 20160301
